FAERS Safety Report 8802357 (Version 3)
Quarter: 2014Q3

REPORT INFORMATION
  Report Type: Report from Study
  Country: US (occurrence: US)
  Receive Date: 20120921
  Receipt Date: 20140815
  Transmission Date: 20150326
  Serious: Yes (Death)
  Sender: FDA-Public Use
  Company Number: US-ROCHE-CID000000002101397

PATIENT
  Age: 44 Year
  Sex: Male
  Weight: 72.6 kg

DRUGS (21)
  1. AVASTIN [Suspect]
     Active Substance: BEVACIZUMAB
     Indication: COLON CANCER
     Route: 042
     Dates: start: 20110317
  2. LEUCOVORIN [Concomitant]
     Active Substance: LEUCOVORIN
     Route: 042
  3. ALOXI [Concomitant]
     Active Substance: PALONOSETRON HYDROCHLORIDE
     Route: 042
  4. EMEND [Concomitant]
     Active Substance: APREPITANT
     Route: 065
  5. AVASTIN [Suspect]
     Active Substance: BEVACIZUMAB
     Indication: RECTAL CANCER
     Dosage: DOSING FROM 360 TO 398 MG
     Route: 042
     Dates: start: 20110307
  6. TRELSTAR [Concomitant]
     Active Substance: TRIPTORELIN PAMOATE
     Route: 030
  7. 5-FU [Concomitant]
     Active Substance: FLUOROURACIL
     Route: 041
  8. XGEVA [Concomitant]
     Active Substance: DENOSUMAB
     Route: 058
  9. PEPCID [Concomitant]
     Active Substance: FAMOTIDINE
     Route: 042
  10. CAMPTOSAR [Concomitant]
     Active Substance: IRINOTECAN HYDROCHLORIDE
     Dosage: ALSO CPT-11
     Route: 042
  11. PNEUMOCOCCAL VACCINE [Concomitant]
     Active Substance: PNEUMOCOCCAL VACCINE POLYVALENT
     Route: 058
  12. AVASTIN [Suspect]
     Active Substance: BEVACIZUMAB
     Indication: COLORECTAL CANCER
  13. DECADRON [Concomitant]
     Active Substance: DEXAMETHASONE
     Route: 041
  14. ATROPINE [Concomitant]
     Active Substance: ATROPINE
     Route: 042
  15. NEULASTA [Concomitant]
     Active Substance: PEGFILGRASTIM
     Indication: NEUTROPENIA
     Route: 065
  16. KYTRIL [Concomitant]
     Active Substance: GRANISETRON HYDROCHLORIDE
     Route: 042
  17. FASLODEX [Concomitant]
     Active Substance: FULVESTRANT
     Route: 030
  18. LIDOCAINE. [Concomitant]
     Active Substance: LIDOCAINE
     Route: 058
  19. FERRLECIT (UNITED STATES) [Concomitant]
     Route: 042
  20. VITAMIN B12 [Concomitant]
     Active Substance: CYANOCOBALAMIN
     Route: 065
  21. NORMAL SALINE [Concomitant]
     Active Substance: SODIUM CHLORIDE
     Route: 042

REACTIONS (7)
  - Oedema peripheral [Unknown]
  - Fatigue [Unknown]
  - Pain [Unknown]
  - Colon cancer metastatic [Fatal]
  - Heart rate increased [Unknown]
  - Asthenia [Unknown]
  - Dyspnoea exertional [Unknown]

NARRATIVE: CASE EVENT DATE: 20110307
